FAERS Safety Report 17023350 (Version 1)
Quarter: 2019Q4

REPORT INFORMATION
  Report Type: Spontaneous
  Country: US (occurrence: US)
  Receive Date: 20191112
  Receipt Date: 20191112
  Transmission Date: 20200122
  Serious: No
  Sender: FDA-Public Use
  Company Number: US-009507513-1911USA003846

PATIENT
  Age: 67 Year
  Sex: Male

DRUGS (1)
  1. ZETIA [Suspect]
     Active Substance: EZETIMIBE
     Route: 048

REACTIONS (2)
  - Product dose omission [Unknown]
  - No adverse event [Unknown]

NARRATIVE: CASE EVENT DATE: 201908
